FAERS Safety Report 6983456-X (Version None)
Quarter: 2010Q3

REPORT INFORMATION
  Report Type: 
  Country: None (occurrence: None)
  Receive Date: 20100914
  Receipt Date: 20080519
  Transmission Date: 20110219
  Serious: No
  Sender: FDA-Public Use
  Company Number: US-WYE-H04191808

PATIENT
  Age: 71 Year
  Sex: Female
  Weight: 68.1 kg

DRUGS (1)
  1. ADVIL LIQUI-GELS [Suspect]
     Indication: HEADACHE
     Route: 048
     Dates: start: 20080518, end: 20080518

REACTIONS (1)
  - MEDICATION RESIDUE [None]
